FAERS Safety Report 4391170-2 (Version None)
Quarter: 2004Q3

REPORT INFORMATION
  Report Type: 
  Country: None (occurrence: None)
  Receive Date: 20040707
  Receipt Date: 20040624
  Transmission Date: 20050211
  Serious: Yes (Life-Threatening, Hospitalization, Disabling, Other)
  Sender: FDA-Public Use
  Company Number: GB-MERCK-0406GBR00212

PATIENT
  Age: 72 Year
  Sex: Male
  Weight: 59 kg

DRUGS (3)
  1. ASPIRIN [Suspect]
     Indication: PERIPHERAL VASCULAR DISORDER
     Route: 048
     Dates: start: 20010524, end: 20040613
  2. OMEPRAZOLE [Concomitant]
     Indication: PROPHYLAXIS AGAINST GASTROINTESTINAL ULCER
     Route: 065
     Dates: start: 20020214
  3. VIOXX [Suspect]
     Indication: RHEUMATOID ARTHRITIS
     Route: 048
     Dates: start: 20011220, end: 20040613

REACTIONS (1)
  - HAEMATEMESIS [None]
